FAERS Safety Report 4598030-2 (Version None)
Quarter: 2005Q1

REPORT INFORMATION
  Report Type: 
  Country: None (occurrence: None)
  Receive Date: 20050204
  Receipt Date: 20031106
  Transmission Date: 20050727
  Serious: Yes (Other)
  Sender: FDA-Public Use
  Company Number: PHEH2003US10266

PATIENT

DRUGS (1)
  1. CLOZARIL [Suspect]
     Dosage: ORAL
     Route: 048

REACTIONS (3)
  - COLOSTOMY [None]
  - CONSTIPATION [None]
  - INTESTINAL OBSTRUCTION [None]
